FAERS Safety Report 12608310 (Version 2)
Quarter: 2017Q1

REPORT INFORMATION
  Report Type: Spontaneous
  Country: US (occurrence: US)
  Receive Date: 20160729
  Receipt Date: 20170112
  Transmission Date: 20170428
  Serious: No
  Sender: FDA-Public Use
  Company Number: US-DEPOMED, INC.-US-2016DEP007428

PATIENT

DRUGS (18)
  1. FUROSEMIDE. [Concomitant]
     Active Substance: FUROSEMIDE
     Indication: OEDEMA
     Dosage: 40 MG, UNK
     Route: 048
     Dates: start: 2009
  2. GABAPENTIN. [Concomitant]
     Active Substance: GABAPENTIN
     Indication: PAIN
     Dosage: 600 MCG PRN
     Dates: start: 1997
  3. KLONOPIN [Concomitant]
     Active Substance: CLONAZEPAM
     Indication: ANTIDEPRESSANT THERAPY
     Dosage: 2 MG, BID
     Route: 048
     Dates: start: 2009
  4. DOXEPIN [Concomitant]
     Active Substance: DOXEPIN
     Indication: SEDATIVE THERAPY
     Dosage: 100 MG, BID
     Route: 048
     Dates: start: 2010
  5. LAZANDA [Suspect]
     Active Substance: FENTANYL CITRATE
     Indication: OFF LABEL USE
  6. LINZESS [Concomitant]
     Active Substance: LINACLOTIDE
     Indication: CONSTIPATION
     Dosage: 290 MICROGRAMS PRN
     Route: 048
     Dates: start: 2014
  7. DULOXETINE. [Concomitant]
     Active Substance: DULOXETINE
     Indication: ANALGESIC THERAPY
     Dosage: DF
  8. OMEPRAZOLE. [Concomitant]
     Active Substance: OMEPRAZOLE
     Indication: GASTROOESOPHAGEAL REFLUX DISEASE
     Dosage: 20 MG, BID
     Route: 048
     Dates: start: 2009
  9. RISPERDAL [Concomitant]
     Active Substance: RISPERIDONE
     Indication: MUSCLE SPASMS
     Dosage: 350 MG, BID
     Route: 048
     Dates: start: 2000
  10. METHADONE [Concomitant]
     Active Substance: METHADONE HYDROCHLORIDE
     Indication: PAIN
     Dosage: 10 MG, QD
     Route: 048
     Dates: start: 2014
  11. MORPHINE [Concomitant]
     Active Substance: MORPHINE
     Indication: PAIN
     Dosage: 100 MG, TID
     Route: 048
     Dates: start: 2010
  12. LIDODERM [Concomitant]
     Active Substance: LIDOCAINE
     Indication: PAIN
     Dosage: 1-4 PATCHES PRN
     Dates: start: 2000
  13. CELEBREX [Concomitant]
     Active Substance: CELECOXIB
     Indication: ARTHRITIS
     Dosage: 200 MG, UNK
     Route: 048
     Dates: start: 2013
  14. DULOXETINE. [Concomitant]
     Active Substance: DULOXETINE
     Indication: ANTIDEPRESSANT THERAPY
     Dosage: DF
  15. NUCYNTA [Concomitant]
     Active Substance: TAPENTADOL HYDROCHLORIDE
     Indication: PAIN
     Dosage: 100 MG, QID
     Route: 048
     Dates: start: 2013
  16. LAZANDA [Suspect]
     Active Substance: FENTANYL CITRATE
     Indication: PAIN
     Dosage: 200 ?G, BID
     Route: 045
     Dates: start: 20150702
  17. BACLOFEN. [Concomitant]
     Active Substance: BACLOFEN
     Indication: MUSCLE RELAXANT THERAPY
     Dosage: 10 MG, UNK, 1 TIME EVERY 4 DAYS
     Route: 048
     Dates: start: 2000
  18. LAZANDA [Suspect]
     Active Substance: FENTANYL CITRATE
     Indication: COMPLEX REGIONAL PAIN SYNDROME
     Dosage: 100 ?G, QD
     Route: 045
     Dates: start: 20150701, end: 20150701

REACTIONS (3)
  - Condition aggravated [Not Recovered/Not Resolved]
  - Drug ineffective for unapproved indication [Not Recovered/Not Resolved]
  - Pain in extremity [Not Recovered/Not Resolved]

NARRATIVE: CASE EVENT DATE: 20150701
